FAERS Safety Report 10726100 (Version 1)
Quarter: 2015Q1

REPORT INFORMATION
  Report Type: Spontaneous
  Country: PL (occurrence: None)
  Receive Date: 20150116
  Receipt Date: 20150116
  Transmission Date: 20150721
  Serious: Yes (Hospitalization)
  Sender: FDA-Public Use
  Company Number: PL-2015VAL000037

PATIENT
  Age: 34 Year
  Sex: Female

DRUGS (5)
  1. CLOMIFENE CITRATE [Suspect]
     Active Substance: CLOMIPHENE
     Indication: OVULATION INDUCTION
  2. OLANZAPIN [Suspect]
     Active Substance: OLANZAPINE
     Indication: DEPRESSION
  3. SERTRALINE [Suspect]
     Active Substance: SERTRALINE HYDROCHLORIDE
     Indication: DEPRESSION
  4. FOLLITROPIN ALFA (FOLLITROPIN ALFA) [Concomitant]
  5. BROMOCRIPTINE MESYLATE (BROMOCRIPTINE MESYLATE) UNKNOWN [Suspect]
     Active Substance: BROMOCRIPTINE MESYLATE
     Indication: HYPERPROLACTINAEMIA

REACTIONS (12)
  - Decreased appetite [None]
  - Loss of employment [None]
  - Adjustment disorder [None]
  - Persecutory delusion [None]
  - Psychotic disorder [None]
  - Anxiety [None]
  - Insomnia [None]
  - Delusion [None]
  - Drug ineffective [None]
  - Maternal exposure during pregnancy [None]
  - Disturbance in attention [None]
  - Depression [None]
